FAERS Safety Report 19964297 (Version 1)
Quarter: 2021Q4

REPORT INFORMATION
  Report Type: Spontaneous
  Country: IT (occurrence: IT)
  Receive Date: 20211018
  Receipt Date: 20211018
  Transmission Date: 20220303
  Serious: Yes (Death, Other)
  Sender: FDA-Public Use
  Company Number: None

PATIENT
  Age: 81 Year
  Sex: Male
  Weight: 78 kg

DRUGS (4)
  1. ENTYVIO [Suspect]
     Active Substance: VEDOLIZUMAB
     Indication: Colitis ulcerative
     Dosage: 300 MILLIGRAM
     Route: 042
     Dates: start: 20190716, end: 20210817
  2. ATORVASTATIN [Concomitant]
     Active Substance: ATORVASTATIN
     Indication: Hypercholesterolaemia
     Dosage: 10 MILLIGRAM, QD
     Route: 048
  3. MESALAMINE [Concomitant]
     Active Substance: MESALAMINE
     Indication: Colitis ulcerative
     Dosage: 1200 MILLIGRAM, QD
     Route: 048
     Dates: start: 19950101
  4. PREDNISONE [Concomitant]
     Active Substance: PREDNISONE
     Indication: Spondylitis
     Dosage: 5 MILLIGRAM, QD
     Route: 048
     Dates: start: 19950101

REACTIONS (4)
  - Metastases to liver [Fatal]
  - Large intestinal stenosis [Fatal]
  - Metastases to peritoneum [Fatal]
  - Colon neoplasm [Fatal]

NARRATIVE: CASE EVENT DATE: 20210922
